FAERS Safety Report 6587713-0 (Version None)
Quarter: 2010Q1

REPORT INFORMATION
  Report Type: 
  Country: None (occurrence: None)
  Receive Date: 20100218
  Receipt Date: 20091105
  Transmission Date: 20100710
  Serious: No
  Sender: FDA-Public Use
  Company Number: A0815375A

PATIENT
  Age: 70 Year
  Sex: Male

DRUGS (3)
  1. COREG CR [Suspect]
     Indication: HYPERTENSION
     Dosage: 40MG PER DAY
     Route: 048
     Dates: start: 20090909
  2. COUMADIN [Concomitant]
  3. CLONIDINE HCL [Concomitant]

REACTIONS (2)
  - BLOOD PRESSURE FLUCTUATION [None]
  - DRUG ADMINISTRATION ERROR [None]
